FAERS Safety Report 9409338 (Version 1)
Quarter: 2013Q3

REPORT INFORMATION
  Report Type: Spontaneous
  Country: US (occurrence: US)
  Receive Date: 20130719
  Receipt Date: 20130719
  Transmission Date: 20140515
  Serious: No
  Sender: FDA-Public Use
  Company Number: US-PFIZER INC-2013211066

PATIENT
  Age: 44 Year
  Sex: 0

DRUGS (9)
  1. DILANTIN [Suspect]
     Dosage: UNK
  2. GABAPENTIN [Suspect]
     Dosage: UNK
  3. IBUPROFEN [Suspect]
     Dosage: UNK
  4. ASPIRIN [Suspect]
     Dosage: UNK
  5. FELBAMATE [Suspect]
     Dosage: UNK
  6. KEPPRA [Suspect]
     Dosage: UNK
  7. LAMICTAL [Suspect]
     Dosage: UNK
  8. TEGRETOL [Suspect]
     Dosage: UNK
  9. TOPAMAX [Suspect]
     Dosage: UNK

REACTIONS (1)
  - Drug hypersensitivity [Unknown]
